FAERS Safety Report 15814669 (Version 3)
Quarter: 2019Q2

REPORT INFORMATION
  Report Type: Spontaneous
  Country: IT (occurrence: IT)
  Receive Date: 20190111
  Receipt Date: 20190415
  Transmission Date: 20190711
  Serious: Yes (Other)
  Sender: FDA-Public Use
  Company Number: PHHY2019IT004247

PATIENT

DRUGS (2)
  1. LORAZEPAM. [Suspect]
     Active Substance: LORAZEPAM
     Indication: DRUG ABUSE
     Dosage: 17.5 MG, TOTAL
     Route: 048
     Dates: start: 20181107
  2. PROZIN [CHLORPROMAZINE HYDROCHLORIDE] [Suspect]
     Active Substance: CHLORPROMAZINE HYDROCHLORIDE
     Indication: DRUG ABUSE
     Dosage: 120 MG, TOTAL
     Route: 048
     Dates: start: 20181107, end: 20181107

REACTIONS (4)
  - Poisoning [Unknown]
  - Drug abuse [Unknown]
  - Toxicity to various agents [Unknown]
  - Sopor [Unknown]

NARRATIVE: CASE EVENT DATE: 20181107
